FAERS Safety Report 22366050 (Version 1)
Quarter: 2023Q2

REPORT INFORMATION
  Report Type: Spontaneous
  Country: ES (occurrence: None)
  Receive Date: 20230525
  Receipt Date: 20230525
  Transmission Date: 20230722
  Serious: Yes (Hospitalization, Other)
  Sender: FDA-Public Use
  Company Number: 2023A113988

PATIENT
  Age: 63 Year
  Sex: Male
  Weight: 83 kg

DRUGS (1)
  1. DURVALUMAB [Suspect]
     Active Substance: DURVALUMAB
     Indication: Lung adenocarcinoma
     Dosage: 10 MG/KG EVERY 14 DAYS. WEIGHT 83KG
     Route: 042
     Dates: start: 20230102, end: 20230213

REACTIONS (3)
  - Atrioventricular block [Recovered/Resolved with Sequelae]
  - Hypertransaminasaemia [Recovered/Resolved]
  - Immune-mediated myocarditis [Recovered/Resolved with Sequelae]

NARRATIVE: CASE EVENT DATE: 20230210
